FAERS Safety Report 9804063 (Version 2)
Quarter: 2014Q2

REPORT INFORMATION
  Report Type: Spontaneous
  Country: US (occurrence: None)
  Receive Date: 20140103
  Receipt Date: 20140404
  Transmission Date: 20141212
  Serious: Yes (Hospitalization)
  Sender: FDA-Public Use
  Company Number: 2013-US-004893

PATIENT
  Age: 61 Year
  Sex: Female
  Weight: 113.4 kg

DRUGS (5)
  1. XYREM [Suspect]
     Indication: NARCOLEPSY
     Dosage: 2.25 G, BID, ORAL
     Route: 048
     Dates: start: 200706
  2. COUMADIN (WARFARIN SODIUM) [Concomitant]
  3. ASPPIRIN (ACETYLSALICYLIC) [Concomitant]
  4. DEXEDRINE (DEXAMFETAMINE SULFATE) [Concomitant]
  5. LEXAPRO (ESCITALOPRAM OXALATE) [Concomitant]

REACTIONS (3)
  - Pulmonary embolism [None]
  - Blepharospasm [None]
  - Weight decreased [None]
